FAERS Safety Report 14928844 (Version 1)
Quarter: 2018Q2

REPORT INFORMATION
  Report Type: Spontaneous
  Country: US (occurrence: US)
  Receive Date: 20180504
  Receipt Date: 20180504
  Transmission Date: 20180711
  Serious: Yes (Hospitalization)
  Sender: FDA-Public Use
  Company Number: None

PATIENT
  Age: 66 Year
  Sex: Male

DRUGS (15)
  1. BOTOX [Concomitant]
     Active Substance: ONABOTULINUMTOXINA
     Dates: start: 20180503
  2. ETODOLAC. [Concomitant]
     Active Substance: ETODOLAC
     Dates: start: 20180503
  3. NERVE PAIN SUB RELIEF [Concomitant]
     Dates: start: 20180503
  4. OXYBUTYNIN. [Concomitant]
     Active Substance: OXYBUTYNIN CHLORIDE
     Dates: start: 20180503
  5. RSPSFLO [Concomitant]
     Dates: start: 20180503
  6. VESICARE [Concomitant]
     Active Substance: SOLIFENACIN SUCCINATE
     Dates: start: 20180503
  7. GABAPENTIN. [Concomitant]
     Active Substance: GABAPENTIN
     Dates: start: 20180503
  8. PRADAXA [Concomitant]
     Active Substance: DABIGATRAN ETEXILATE MESYLATE
     Dates: start: 20180503
  9. FUROSEMIDE. [Concomitant]
     Active Substance: FUROSEMIDE
     Dates: start: 20180503
  10. MUCINEX [Concomitant]
     Active Substance: GUAIFENESIN
     Dates: start: 20180501
  11. BACLOFEN. [Concomitant]
     Active Substance: BACLOFEN
     Dates: start: 20180503
  12. NALTREXONE POW HCL [Concomitant]
     Dates: start: 20180503
  13. PANTOPRAZOLE [Concomitant]
     Active Substance: PANTOPRAZOLE
     Dates: start: 20180503
  14. LEVOFLOXACIN. [Concomitant]
     Active Substance: LEVOFLOXACIN
     Dates: start: 20180501
  15. OCREVUS [Suspect]
     Active Substance: OCRELIZUMAB
     Indication: MULTIPLE SCLEROSIS
     Dosage: OTHER FREQUENCY:EVERY 6 MONTHS;?
     Route: 017
     Dates: start: 20180330

REACTIONS (5)
  - Pneumonia aspiration [None]
  - Fatigue [None]
  - Neuralgia [None]
  - Muscle spasms [None]
  - Gait inability [None]
